FAERS Safety Report 7493243-4 (Version None)
Quarter: 2011Q2

REPORT INFORMATION
  Report Type: 
  Country: None (occurrence: None)
  Receive Date: 20110520
  Receipt Date: 20110412
  Transmission Date: 20111010
  Serious: Yes (Other)
  Sender: FDA-Public Use
  Company Number: US-BAYER-201038177NA

PATIENT
  Sex: Female
  Weight: 76.19 kg

DRUGS (3)
  1. YAZ [Suspect]
     Indication: CONTRACEPTION
     Dosage: UNK
     Dates: start: 20050101, end: 20080101
  2. IBUPROFEN [Concomitant]
     Dosage: UNK UNK, PRN
  3. YASMIN [Suspect]
     Indication: CONTRACEPTION
     Dosage: UNK
     Dates: start: 20050101, end: 20080101

REACTIONS (3)
  - GALLBLADDER DISORDER [None]
  - BILE DUCT OBSTRUCTION [None]
  - HEPATIC ENZYME INCREASED [None]
